FAERS Safety Report 21096806 (Version 1)
Quarter: 2022Q3

REPORT INFORMATION
  Report Type: Report from Study
  Country: US (occurrence: US)
  Receive Date: 20220718
  Receipt Date: 20220718
  Transmission Date: 20221027
  Serious: No
  Sender: FDA-Public Use
  Company Number: US-BIOMARINAP-US-2022-143239

PATIENT

DRUGS (14)
  1. BRINEURA [Suspect]
     Active Substance: CERLIPONASE ALFA
     Indication: Neuronal ceroid lipofuscinosis
     Dosage: 300 MILLIGRAM, QOW
     Route: 020
     Dates: start: 20190509
  2. ALBUTEROL [Concomitant]
     Active Substance: ALBUTEROL
     Indication: Asthma
     Dosage: ~~~
  3. ZONISAMIDE [Concomitant]
     Active Substance: ZONISAMIDE
     Indication: Epilepsy
     Dates: start: 20181107
  4. MIDAZOLAM [Concomitant]
     Active Substance: MIDAZOLAM
     Indication: Epilepsy
     Dates: start: 20190919
  5. CLOBAZAM [Concomitant]
     Active Substance: CLOBAZAM
     Indication: Epilepsy
     Dates: start: 20200202
  6. CLOBAZAM [Concomitant]
     Active Substance: CLOBAZAM
     Dates: start: 20200202
  7. ACETAMINOPHEN [Concomitant]
     Active Substance: ACETAMINOPHEN
     Indication: Neuronal ceroid lipofuscinosis
     Dates: start: 20190509
  8. ACETAMINOPHEN [Concomitant]
     Active Substance: ACETAMINOPHEN
     Indication: Premedication
  9. LIDOCAINE [Concomitant]
     Active Substance: LIDOCAINE
     Indication: Neuronal ceroid lipofuscinosis
     Route: 061
  10. LIDOCAINE [Concomitant]
     Active Substance: LIDOCAINE
     Indication: Premedication
  11. VALTOCO [Concomitant]
     Active Substance: DIAZEPAM
     Indication: Epilepsy
     Dates: start: 20201214
  12. MELATONIN [Concomitant]
     Active Substance: MELATONIN
     Indication: Sleep disorder
     Dates: start: 20200722
  13. CETIRIZINE [Concomitant]
     Active Substance: CETIRIZINE HYDROCHLORIDE
     Indication: Neuronal ceroid lipofuscinosis
     Dates: start: 20190509
  14. CETIRIZINE [Concomitant]
     Active Substance: CETIRIZINE HYDROCHLORIDE
     Indication: Premedication

REACTIONS (1)
  - Device leakage [Recovered/Resolved with Sequelae]

NARRATIVE: CASE EVENT DATE: 20220511
